FAERS Safety Report 13367371 (Version 1)
Quarter: 2017Q1

REPORT INFORMATION
  Report Type: Report from Study
  Country: US (occurrence: US)
  Receive Date: 20170324
  Receipt Date: 20170324
  Transmission Date: 20170429
  Serious: Yes (Other)
  Sender: FDA-Public Use
  Company Number: US-MALLINCKRODT-T201605792

PATIENT
  Age: 60 Year
  Sex: Female

DRUGS (2)
  1. REPOSITORY CORTICOTROPIN INJECTION [Suspect]
     Active Substance: CORTICOTROPIN
     Indication: LUPUS NEPHRITIS
     Dosage: 80U/1ML 2X/WK (TUES. AND FRI.)
     Route: 058
  2. REPOSITORY CORTICOTROPIN INJECTION [Suspect]
     Active Substance: CORTICOTROPIN
     Dosage: 40U/.5ML, TWICE WEEKLY (TUES+FRI)
     Route: 058
     Dates: start: 20161025

REACTIONS (10)
  - Back pain [Unknown]
  - Muscle spasms [Unknown]
  - Pain in extremity [Unknown]
  - Umbilical hernia [Unknown]
  - Headache [Unknown]
  - Fatigue [Unknown]
  - Blood creatinine increased [Recovering/Resolving]
  - Dyspepsia [Unknown]
  - Blood pressure increased [Unknown]
  - Myositis [Unknown]

NARRATIVE: CASE EVENT DATE: 20161026
